FAERS Safety Report 22121606 (Version 1)
Quarter: 2023Q1

REPORT INFORMATION
  Report Type: Spontaneous
  Country: US (occurrence: None)
  Receive Date: 20230321
  Receipt Date: 20230321
  Transmission Date: 20230418
  Serious: No
  Sender: FDA-Public Use
  Company Number: None

PATIENT
  Sex: Female

DRUGS (16)
  1. AMBRISENTAN [Suspect]
     Active Substance: AMBRISENTAN
     Indication: Pulmonary arterial hypertension
     Dosage: FREQUENCY : DAILY;?OTHER ROUTE : G-TUBE;?
     Route: 050
  2. CETIRIZINE HCL CHILDRENS [Concomitant]
  3. LEVALBUTEROL TARTRATE [Concomitant]
     Active Substance: LEVALBUTEROL TARTRATE
  4. DIGOXIN [Concomitant]
     Active Substance: DIGOXIN
  5. EPANED [Concomitant]
     Active Substance: ENALAPRIL MALEATE
  6. CAROSPIR [Concomitant]
     Active Substance: SPIRONOLACTONE
  7. LETAIRIS [Concomitant]
     Active Substance: AMBRISENTAN
  8. TADALAFIL [Concomitant]
     Active Substance: TADALAFIL
  9. BUDESONIDE [Concomitant]
     Active Substance: BUDESONIDE
  10. FUROSEMIDE [Concomitant]
     Active Substance: FUROSEMIDE
  11. NEXIUM [Concomitant]
     Active Substance: ESOMEPRAZOLE MAGNESIUM
  12. SENNA [Concomitant]
     Active Substance: SENNA LEAF\SENNOSIDES\SENNOSIDES A AND B
  13. MILK OF MAGNESIA [Concomitant]
     Active Substance: MAGNESIUM HYDROXIDE
  14. ASPIRIN [Concomitant]
     Active Substance: ASPIRIN
  15. CARVEDILOL [Concomitant]
     Active Substance: CARVEDILOL
  16. VITAMIN D [Concomitant]
     Active Substance: VITAMIN D NOS

REACTIONS (1)
  - Off label use [None]
